FAERS Safety Report 22717342 (Version 9)
Quarter: 2024Q2

REPORT INFORMATION
  Report Type: Spontaneous
  Country: RO (occurrence: RO)
  Receive Date: 20230718
  Receipt Date: 20240529
  Transmission Date: 20240715
  Serious: Yes (Hospitalization, Other)
  Sender: FDA-Public Use
  Company Number: RO-EGIS-HUN-2023-0553

PATIENT
  Age: 71 Year
  Sex: Male

DRUGS (21)
  1. PANTOPRAZOLE [Interacting]
     Active Substance: PANTOPRAZOLE
     Indication: Gastrooesophageal reflux disease
     Dosage: UNK UNK, 2X/WEEK
  2. PANTOPRAZOLE [Interacting]
     Active Substance: PANTOPRAZOLE
     Dosage: QD, DAILY USE (PPI)
  3. AMLODIPINE BESYLATE [Interacting]
     Active Substance: AMLODIPINE BESYLATE
     Dosage: UNK, 2X/WEEK
     Route: 065
  4. GABAPENTIN [Interacting]
     Active Substance: GABAPENTIN
     Dosage: UNK, 2X/WEEK
  5. VENLAFAXINE HCL [Interacting]
     Active Substance: VENLAFAXINE HYDROCHLORIDE
     Indication: Depression
     Dosage: UNK, 2X/WEEK
  6. VENLAFAXINE HCL [Interacting]
     Active Substance: VENLAFAXINE HYDROCHLORIDE
     Indication: Sleep disorder
     Dosage: QD, DAILY USE (SNRI)
  7. VENLAFAXINE HCL [Interacting]
     Active Substance: VENLAFAXINE HYDROCHLORIDE
     Indication: Hypertension
  8. VENLAFAXINE HCL [Interacting]
     Active Substance: VENLAFAXINE HYDROCHLORIDE
     Indication: Obesity
  9. VENLAFAXINE HCL [Interacting]
     Active Substance: VENLAFAXINE HYDROCHLORIDE
     Indication: Gastrooesophageal reflux disease
  10. VENLAFAXINE HCL [Interacting]
     Active Substance: VENLAFAXINE HYDROCHLORIDE
     Indication: Arthralgia
  11. VENLAFAXINE HCL [Interacting]
     Active Substance: VENLAFAXINE HYDROCHLORIDE
     Indication: Myocardial ischaemia
  12. AMLODIPINE\INDAPAMIDE\PERINDOPRIL [Interacting]
     Active Substance: AMLODIPINE\INDAPAMIDE\PERINDOPRIL
     Indication: Myocardial ischaemia
     Dosage: UNK, 2X/WEEK
     Route: 065
  13. AMLODIPINE\INDAPAMIDE\PERINDOPRIL [Interacting]
     Active Substance: AMLODIPINE\INDAPAMIDE\PERINDOPRIL
     Indication: Hypertension
  14. CLONAZEPAM [Interacting]
     Active Substance: CLONAZEPAM
     Indication: Depression
     Dosage: UNK, 2X/WEEK
     Route: 065
  15. FUROSEMIDE [Interacting]
     Active Substance: FUROSEMIDE
     Indication: Myocardial ischaemia
     Dosage: UNK, 2X/WEEK
     Route: 065
  16. IBUPROFEN [Interacting]
     Active Substance: IBUPROFEN
     Indication: Arthralgia
     Dosage: UNK, 2X/WEEK
     Route: 065
  17. INDAPAMIDE [Interacting]
     Active Substance: INDAPAMIDE
     Indication: Myocardial ischaemia
     Dosage: UNK, 2X/WEEK
     Route: 065
  18. INDAPAMIDE [Interacting]
     Active Substance: INDAPAMIDE
     Indication: Hypertension
  19. INDOMETHACIN [Interacting]
     Active Substance: INDOMETHACIN
     Indication: Arthralgia
     Dosage: UNK, 2X/WEEK
     Route: 065
  20. PERINDOPRIL [Interacting]
     Active Substance: PERINDOPRIL
     Indication: Hypertension
     Dosage: UNK, 2X/WEEK
     Route: 065
  21. PERINDOPRIL [Interacting]
     Active Substance: PERINDOPRIL
     Indication: Myocardial ischaemia

REACTIONS (4)
  - Myocardial infarction [Unknown]
  - Arrhythmia [Unknown]
  - Drug interaction [Unknown]
  - Product prescribing issue [Unknown]

NARRATIVE: CASE EVENT DATE: 20230222
